FAERS Safety Report 16406424 (Version 1)
Quarter: 2019Q2

REPORT INFORMATION
  Report Type: Spontaneous
  Country: US (occurrence: US)
  Receive Date: 20190607
  Receipt Date: 20190607
  Transmission Date: 20190711
  Serious: Yes (Hospitalization)
  Sender: FDA-Public Use
  Company Number: PHHY2019US126082

PATIENT
  Age: 56 Year
  Sex: Female

DRUGS (2)
  1. AZATHIOPRINE. [Suspect]
     Active Substance: AZATHIOPRINE
     Indication: RHEUMATOID ARTHRITIS
     Route: 065
  2. PREDNISONE. [Suspect]
     Active Substance: PREDNISONE
     Indication: RHEUMATOID ARTHRITIS
     Route: 065

REACTIONS (7)
  - Skin mass [Unknown]
  - Purpura [Unknown]
  - Calciphylaxis [Unknown]
  - Pain [Unknown]
  - Skin plaque [Unknown]
  - Concomitant disease aggravated [Unknown]
  - Skin lesion [Unknown]
